FAERS Safety Report 24145648 (Version 1)
Quarter: 2024Q3

REPORT INFORMATION
  Report Type: Spontaneous
  Country: US (occurrence: US)
  Receive Date: 20240729
  Receipt Date: 20240729
  Transmission Date: 20241017
  Serious: Yes (Other)
  Sender: MERCK
  Company Number: US-009507513-2407USA014698

PATIENT
  Sex: Male

DRUGS (22)
  1. KEYTRUDA [Suspect]
     Active Substance: PEMBROLIZUMAB
     Indication: Thyroid cancer metastatic
     Dosage: UNK
  2. CABOMETYX [Suspect]
     Active Substance: CABOZANTINIB S-MALATE
     Indication: Thyroid cancer metastatic
     Dosage: 40 MILLIGRAM, QD
     Route: 048
     Dates: start: 20211118
  3. CABOMETYX [Suspect]
     Active Substance: CABOZANTINIB S-MALATE
     Dosage: 40 MILLIGRAM, QD
     Route: 048
     Dates: start: 20231101
  4. ZOMETA [Suspect]
     Active Substance: ZOLEDRONIC ACID
     Indication: Thyroid cancer metastatic
     Dosage: UNK
  5. AMLODIPINE [Concomitant]
     Active Substance: AMLODIPINE BESYLATE
  6. JARDIANCE [Concomitant]
     Active Substance: EMPAGLIFLOZIN
  7. LOSARTAN [Concomitant]
     Active Substance: LOSARTAN
  8. GABAPENTIN [Concomitant]
     Active Substance: GABAPENTIN
  9. CRESTOR [Concomitant]
     Active Substance: ROSUVASTATIN CALCIUM
  10. DOXAZOSIN [Concomitant]
     Active Substance: DOXAZOSIN MESYLATE
  11. DIGOXIN [Concomitant]
     Active Substance: DIGOXIN
  12. CHOLECALCIFEROL [Concomitant]
     Active Substance: CHOLECALCIFEROL
  13. VITAMINS [Concomitant]
     Active Substance: VITAMINS
  14. EPLERENONE [Concomitant]
     Active Substance: EPLERENONE
  15. MAGNESIUM [Concomitant]
     Active Substance: MAGNESIUM
  16. ELIQUIS [Concomitant]
     Active Substance: APIXABAN
  17. BUMETANIDE [Concomitant]
     Active Substance: BUMETANIDE
  18. METFORMIN [Concomitant]
     Active Substance: METFORMIN HYDROCHLORIDE
  19. CARVEDILOL [Concomitant]
     Active Substance: CARVEDILOL
  20. SYNTHROID [Concomitant]
     Active Substance: LEVOTHYROXINE SODIUM
  21. PREVACID [Concomitant]
     Active Substance: LANSOPRAZOLE
  22. CALCIUM CITRATE\CHOLECALCIFEROL [Concomitant]
     Active Substance: CALCIUM CITRATE\CHOLECALCIFEROL

REACTIONS (3)
  - Oral surgery [Recovering/Resolving]
  - Osteomyelitis [Recovering/Resolving]
  - Bone lesion [Recovering/Resolving]

NARRATIVE: CASE EVENT DATE: 20220101
